FAERS Safety Report 13462803 (Version 1)
Quarter: 2017Q2

REPORT INFORMATION
  Report Type: Spontaneous
  Country: CN (occurrence: CN)
  Receive Date: 20170420
  Receipt Date: 20170420
  Transmission Date: 20170830
  Serious: Yes (Other)
  Sender: FDA-Public Use
  Company Number: CN-ELI_LILLY_AND_COMPANY-CN201704006529

PATIENT
  Age: 22 Year
  Sex: Male
  Weight: 77 kg

DRUGS (1)
  1. ZYPREXA [Suspect]
     Active Substance: OLANZAPINE
     Indication: MENTAL DISORDER
     Dosage: 20 MG, QD
     Route: 048
     Dates: start: 20160907, end: 20170112

REACTIONS (5)
  - Pruritus [Unknown]
  - Drug-induced liver injury [Unknown]
  - Blood alkaline phosphatase decreased [Unknown]
  - Extrapyramidal disorder [Unknown]
  - Alanine aminotransferase increased [Unknown]

NARRATIVE: CASE EVENT DATE: 201609
